FAERS Safety Report 7067749-6 (Version None)
Quarter: 2010Q4

REPORT INFORMATION
  Report Type: 
  Country: None (occurrence: None)
  Receive Date: 20101028
  Receipt Date: 20101011
  Transmission Date: 20110411
  Serious: No
  Sender: FDA-Public Use
  Company Number: A0735896A

PATIENT
  Sex: Male

DRUGS (9)
  1. SEREVENT [Suspect]
     Indication: PRODUCT USED FOR UNKNOWN INDICATION
     Dosage: 1PUFF TWICE PER DAY
     Route: 055
     Dates: start: 19940101
  2. FORADIL [Concomitant]
  3. ASMANEX TWISTHALER [Concomitant]
  4. CLONIDINE [Concomitant]
  5. DIOVAN [Concomitant]
  6. MUCINEX [Concomitant]
  7. XYZAL [Concomitant]
  8. ALBUTEROL [Concomitant]
  9. ACIPHEX [Concomitant]

REACTIONS (5)
  - CHEST DISCOMFORT [None]
  - DRUG INEFFECTIVE [None]
  - DYSPNOEA [None]
  - PEAK EXPIRATORY FLOW RATE DECREASED [None]
  - PRODUCT QUALITY ISSUE [None]
